FAERS Safety Report 12670553 (Version 9)
Quarter: 2021Q4

REPORT INFORMATION
  Report Type: Spontaneous
  Country: CA (occurrence: CA)
  Receive Date: 20160822
  Receipt Date: 20211126
  Transmission Date: 20220304
  Serious: Yes (Hospitalization, Other)
  Sender: FDA-Public Use
  Company Number: CA-AMGEN-CANSP2015140902

PATIENT
  Age: 62 Year
  Sex: Female

DRUGS (19)
  1. ENBREL [Suspect]
     Active Substance: ETANERCEPT
     Indication: Rheumatoid arthritis
     Dosage: UNK
     Route: 058
  2. CELEBREX [Suspect]
     Active Substance: CELECOXIB
     Indication: Rheumatoid arthritis
     Dosage: UNK
     Route: 065
  3. HYDROMORPHONE [Suspect]
     Active Substance: HYDROMORPHONE
     Indication: Pain
     Dosage: 2 MILLIGRAM, AS NECESSARY
     Route: 065
  4. HYDROMORPHONE [Suspect]
     Active Substance: HYDROMORPHONE
     Dosage: 2 MILLIGRAM
     Route: 065
  5. HYDROMORPHONE [Suspect]
     Active Substance: HYDROMORPHONE
     Indication: Rheumatoid arthritis
     Dosage: 3 MILLIGRAM, 2 EVERY 1 DAYS
     Route: 065
  6. LEFLUNOMIDE [Suspect]
     Active Substance: LEFLUNOMIDE
     Indication: Rheumatoid arthritis
     Route: 048
  7. METHOTREXATE SODIUM [Suspect]
     Active Substance: METHOTREXATE SODIUM
     Indication: Rheumatoid arthritis
     Dosage: UNK
     Route: 065
  8. ORENCIA [Suspect]
     Active Substance: ABATACEPT
     Indication: Rheumatoid arthritis
     Dosage: UNK
     Route: 065
  9. REMICADE [Suspect]
     Active Substance: INFLIXIMAB
     Indication: Rheumatoid arthritis
     Dosage: UNK
     Route: 065
  10. REMICADE [Suspect]
     Active Substance: INFLIXIMAB
     Indication: Pain
     Dosage: UNK
     Route: 042
  11. SIMPONI [Suspect]
     Active Substance: GOLIMUMAB
     Indication: Rheumatoid arthritis
     Dosage: UNK
     Route: 058
  12. SIMPONI [Suspect]
     Active Substance: GOLIMUMAB
     Indication: Pain
     Dosage: UNK
     Route: 058
  13. SIMPONI [Suspect]
     Active Substance: GOLIMUMAB
     Dosage: UNK
     Route: 065
  14. XELJANZ [Suspect]
     Active Substance: TOFACITINIB CITRATE
     Indication: Rheumatoid arthritis
     Dosage: 5 MILLIGRAM, 2 EVERY 1 DAYS
     Route: 048
  15. XELJANZ [Suspect]
     Active Substance: TOFACITINIB CITRATE
     Indication: Pain
     Dosage: UNK
     Route: 065
  16. HYDROMORPHONE HYDROCHLORIDE [Suspect]
     Active Substance: HYDROMORPHONE HYDROCHLORIDE
     Indication: Pain
     Dosage: 2 MILLIGRAM, UNK
     Route: 065
  17. LEFLUNOMIDE [Suspect]
     Active Substance: LEFLUNOMIDE
     Indication: Rheumatoid arthritis
     Dosage: UNK
     Route: 048
  18. METHOTREXATE [Suspect]
     Active Substance: METHOTREXATE
     Indication: Rheumatoid arthritis
     Dosage: UNK
     Route: 065
  19. HYDROMORPHONE HYDROCHLORIDE [Suspect]
     Active Substance: HYDROMORPHONE HYDROCHLORIDE
     Indication: Pain
     Dosage: 2 MILLIGRAM, UNK
     Route: 065

REACTIONS (7)
  - Therapeutic response decreased [Unknown]
  - Nausea [Unknown]
  - Pain in extremity [Unknown]
  - Walking aid user [Unknown]
  - Contraindicated product administered [Unknown]
  - Pneumonia [Unknown]
  - Lower respiratory tract infection [Unknown]
